FAERS Safety Report 24008820 (Version 2)
Quarter: 2024Q2

REPORT INFORMATION
  Report Type: Spontaneous
  Country: US (occurrence: US)
  Receive Date: 20240625
  Receipt Date: 20240626
  Transmission Date: 20240716
  Serious: Yes (Life-Threatening, Hospitalization, Other)
  Sender: FDA-Public Use
  Company Number: US-SA-2024SA182715

PATIENT
  Age: 54 Year
  Sex: Male

DRUGS (2)
  1. INSULIN GLARGINE [Suspect]
     Active Substance: INSULIN GLARGINE
     Dosage: 3000 U, TOTAL (PENS)
  2. CARVEDILOL [Suspect]
     Active Substance: CARVEDILOL
     Dosage: 8,750 MG, TOTAL

REACTIONS (8)
  - Unresponsive to stimuli [Recovering/Resolving]
  - Hyperhidrosis [Recovering/Resolving]
  - Hypoglycaemia [Recovering/Resolving]
  - Lethargy [Recovering/Resolving]
  - Toxicity to various agents [Recovering/Resolving]
  - Overdose [Recovering/Resolving]
  - Bradycardia [Recovering/Resolving]
  - Mental status changes [Recovering/Resolving]
